FAERS Safety Report 23932811 (Version 1)
Quarter: 2024Q2

REPORT INFORMATION
  Report Type: Report from Study
  Country: US (occurrence: US)
  Receive Date: 20240603
  Receipt Date: 20240603
  Transmission Date: 20240716
  Serious: Yes (Hospitalization)
  Sender: FDA-Public Use
  Company Number: US-GILEAD-2024-0675153

PATIENT
  Sex: Female

DRUGS (29)
  1. AZTREONAM LYSINE [Suspect]
     Active Substance: AZTREONAM LYSINE
     Indication: Chronic respiratory failure
     Dosage: 75 MG, BID (INHALE 1 VIAL (75 MG) VIA ALTERA NEBULIZER EVERY 12 HOURS, ONE MONTH ON, ONE MONTH OFF
     Route: 055
  2. ENALAPRIL [Concomitant]
     Active Substance: ENALAPRIL
  3. OXYGEN [Concomitant]
     Active Substance: OXYGEN
  4. CREON [Concomitant]
     Active Substance: PANCRELIPASE AMYLASE\PANCRELIPASE LIPASE\PANCRELIPASE PROTEASE
  5. LEVALBUTEROL HYDROCHLORIDE [Concomitant]
     Active Substance: LEVALBUTEROL HYDROCHLORIDE
  6. CLONAZEPAM [Concomitant]
     Active Substance: CLONAZEPAM
  7. FLONASE [Concomitant]
     Active Substance: FLUTICASONE PROPIONATE
  8. METOPROLOL TARTRATE [Concomitant]
     Active Substance: METOPROLOL TARTRATE
  9. AMOXICILLIN [Concomitant]
     Active Substance: AMOXICILLIN
  10. PULMICORT TURBUHALER [Concomitant]
     Active Substance: BUDESONIDE
  11. ZOSYN [Concomitant]
     Active Substance: PIPERACILLIN SODIUM\TAZOBACTAM SODIUM
  12. ERGOCALCIFEROL [Concomitant]
     Active Substance: ERGOCALCIFEROL
  13. PHENOBARBITAL [Concomitant]
     Active Substance: PHENOBARBITAL
  14. LACOSAMIDE [Concomitant]
     Active Substance: LACOSAMIDE
  15. FENOFIBRATE [Concomitant]
     Active Substance: FENOFIBRATE
  16. SODIUM BICARBONATE [Concomitant]
     Active Substance: SODIUM BICARBONATE
  17. OMEPRAZOLE [Concomitant]
     Active Substance: DONEPEZIL HYDROCHLORIDE\OMEPRAZOLE\OMEPRAZOLE MAGNESIUM
  18. FERROUS SULFATE [Concomitant]
     Active Substance: FERROUS SULFATE
  19. PULMOZYME [Concomitant]
     Active Substance: DORNASE ALFA
  20. HYDROCORTISONE [Concomitant]
     Active Substance: HYDROCORTISONE
  21. CHILDREN^S ALLEGRA HIVES [Concomitant]
  22. FYCOMPA [Concomitant]
     Active Substance: PERAMPANEL
  23. NYSTATIN [Concomitant]
     Active Substance: NYSTATIN
  24. TACROLIMUS [Concomitant]
     Active Substance: TACROLIMUS
  25. DIAZEPAM [Concomitant]
     Active Substance: DIAZEPAM
  26. LOPERAMIDE [Concomitant]
     Active Substance: LOPERAMIDE
  27. TOPIRAMATE [Concomitant]
     Active Substance: TOPIRAMATE
  28. VALTOCO [Concomitant]
     Active Substance: DIAZEPAM
  29. MAGONATE [MAGNESIUM CARBONATE] [Concomitant]

REACTIONS (2)
  - Respiratory tract infection [Unknown]
  - Off label use [Not Recovered/Not Resolved]
